FAERS Safety Report 21048721 (Version 1)
Quarter: 2022Q3

REPORT INFORMATION
  Report Type: Spontaneous
  Country: US (occurrence: None)
  Receive Date: 20220706
  Receipt Date: 20220706
  Transmission Date: 20221027
  Serious: No
  Sender: FDA-Public Use
  Company Number: None

PATIENT
  Age: 61 Year
  Sex: Female

DRUGS (1)
  1. AUSTEDO [Suspect]
     Active Substance: DEUTETRABENAZINE
     Indication: Dyskinesia
     Dosage: 6MG TWICE A DAY BY MOUTH?
     Route: 048
     Dates: start: 202206

REACTIONS (4)
  - Tardive dyskinesia [None]
  - Fatigue [None]
  - Depressed mood [None]
  - Therapy non-responder [None]

NARRATIVE: CASE EVENT DATE: 20220601
